FAERS Safety Report 17469175 (Version 2)
Quarter: 2021Q1

REPORT INFORMATION
  Report Type: Report from Study
  Country: US (occurrence: US)
  Receive Date: 20200227
  Receipt Date: 20210107
  Transmission Date: 20210419
  Serious: No
  Sender: FDA-Public Use
  Company Number: US-SA-2020SA045560

PATIENT

DRUGS (3)
  1. DUPILUMAB [Suspect]
     Active Substance: DUPILUMAB
     Dosage: 300 MG, QOW
     Route: 058
     Dates: start: 2020
  2. DUPILUMAB [Suspect]
     Active Substance: DUPILUMAB
     Indication: NASAL POLYPS
     Dosage: 300 MG, QOW
     Route: 058
     Dates: start: 20191001, end: 202010
  3. DUPILUMAB [Suspect]
     Active Substance: DUPILUMAB
     Indication: SINUS DISORDER
     Dosage: UNK UNK, QM
     Route: 058

REACTIONS (9)
  - Product dose omission issue [Unknown]
  - Off label use [Unknown]
  - Disease recurrence [Unknown]
  - Memory impairment [Unknown]
  - Rash [Unknown]
  - Product use in unapproved indication [Unknown]
  - Intentional dose omission [Unknown]
  - Laziness [Not Recovered/Not Resolved]
  - Oral herpes [Unknown]

NARRATIVE: CASE EVENT DATE: 2020
